FAERS Safety Report 8065171-7 (Version None)
Quarter: 2012Q1

REPORT INFORMATION
  Report Type: 
  Country: None (occurrence: None)
  Receive Date: 20120124
  Receipt Date: 20120112
  Transmission Date: 20120608
  Serious: Yes (Hospitalization)
  Sender: FDA-Public Use
  Company Number: US-BAYER-2011-106938

PATIENT
  Sex: Female

DRUGS (3)
  1. YASMIN [Suspect]
     Dosage: UNK
     Dates: start: 20000101, end: 20070101
  2. YAZ [Suspect]
     Dosage: UNK
     Dates: start: 20000101, end: 20070101
  3. IMITREX [Concomitant]
     Indication: MIGRAINE
     Dosage: UNK
     Dates: start: 20010101, end: 20030101

REACTIONS (2)
  - CHOLECYSTITIS CHRONIC [None]
  - GASTRIC DISORDER [None]
